FAERS Safety Report 10332859 (Version 1)
Quarter: 2014Q3

REPORT INFORMATION
  Report Type: Spontaneous
  Country: PT (occurrence: PT)
  Receive Date: 20140722
  Receipt Date: 20140722
  Transmission Date: 20150326
  Serious: Yes (Hospitalization)
  Sender: FDA-Public Use
  Company Number: PHHY2014PT087560

PATIENT
  Age: 74 Year
  Sex: Male

DRUGS (10)
  1. CARVEDILOL. [Concomitant]
     Active Substance: CARVEDILOL
     Dosage: 6.25 MG, BID
  2. EPINITRIL [Concomitant]
     Active Substance: NITROGLYCERIN
     Dosage: 5 MG, UNK
     Route: 062
  3. ALOPURINOL [Concomitant]
     Active Substance: ALLOPURINOL
     Dosage: 100 MG, UNK
  4. FLUTICASONE W/SALMETEROL [Concomitant]
     Active Substance: FLUTICASONE PROPIONATE\SALMETEROL XINAFOATE
     Dosage: 1 DF, BID
     Route: 055
  5. FUROSEMIDE. [Concomitant]
     Active Substance: FUROSEMIDE
     Dosage: 120 MG, UNK
  6. CILAZAPRIL [Concomitant]
     Active Substance: CILAZAPRIL ANHYDROUS
     Dosage: 5 MG, UNK
  7. OMEPRAZOL [Concomitant]
     Active Substance: OMEPRAZOLE
     Dosage: 20 MG, UNK
  8. EUFILINA [Concomitant]
     Dosage: 250 MG, UNK
  9. DOMICILIARY OXYGEN [Concomitant]
  10. WARFARIN [Suspect]
     Active Substance: WARFARIN

REACTIONS (9)
  - Lung infection [Not Recovered/Not Resolved]
  - Renal failure acute [Not Recovered/Not Resolved]
  - Oliguria [Not Recovered/Not Resolved]
  - Haematuria [Not Recovered/Not Resolved]
  - Proteinuria [Not Recovered/Not Resolved]
  - Gingival bleeding [Not Recovered/Not Resolved]
  - Wheezing [Not Recovered/Not Resolved]
  - Kidney small [Not Recovered/Not Resolved]
  - Epistaxis [Not Recovered/Not Resolved]
